FAERS Safety Report 8793632 (Version 1)
Quarter: 2012Q4

REPORT INFORMATION
  Report Type: 
  Country: IT (occurrence: IT)
  Receive Date: 20120917
  Receipt Date: 20120917
  Transmission Date: 20130627
  Serious: Yes (Hospitalization)
  Sender: FDA-Public Use
  Company Number: IT-GLAXOSMITHKLINE-B0830792A

PATIENT
  Age: 15 Year
  Sex: Female

DRUGS (2)
  1. LAMOTRIGINE [Suspect]
     Indication: JUVENILE MYOCLONIC EPILEPSY
     Dosage: 25MG Per day
     Route: 048
     Dates: start: 20120120, end: 20120217
  2. VALPROIC ACID [Concomitant]
     Indication: JUVENILE MYOCLONIC EPILEPSY
     Dosage: 500MG Twice per day

REACTIONS (16)
  - Stevens-Johnson syndrome [Recovering/Resolving]
  - Lymphadenopathy [Unknown]
  - Eyelid oedema [Unknown]
  - Photophobia [Unknown]
  - Lip oedema [Unknown]
  - Pyrexia [Unknown]
  - Pharyngeal erythema [Unknown]
  - Oropharyngeal pain [Unknown]
  - Dysphagia [Unknown]
  - Stomatitis [Unknown]
  - Throat tightness [Unknown]
  - Varicella [Unknown]
  - Rash generalised [Unknown]
  - Mouth ulceration [Unknown]
  - Genital ulceration [Unknown]
  - Conjunctivitis [Unknown]
